FAERS Safety Report 12684835 (Version 1)
Quarter: 2016Q3

REPORT INFORMATION
  Report Type: Spontaneous
  Country: IT (occurrence: IT)
  Receive Date: 20160825
  Receipt Date: 20160825
  Transmission Date: 20161109
  Serious: Yes (Hospitalization, Other)
  Sender: FDA-Public Use
  Company Number: IT-GLAXOSMITHKLINE-IT2016GSK123225

PATIENT
  Age: 94 Year
  Sex: Male

DRUGS (4)
  1. MEPRAL [Concomitant]
     Active Substance: OMEPRAZOLE SODIUM
     Indication: PRODUCT USED FOR UNKNOWN INDICATION
     Dosage: 20 MG, UNK
     Route: 048
     Dates: start: 20100304, end: 20160723
  2. ASCRIPTIN [Concomitant]
     Active Substance: ASPIRIN
     Indication: PRODUCT USED FOR UNKNOWN INDICATION
     Route: 048
  3. LEVOPRAID [Concomitant]
     Active Substance: SULPIRIDE
     Indication: PRODUCT USED FOR UNKNOWN INDICATION
  4. ACYCLOVIR. [Suspect]
     Active Substance: ACYCLOVIR
     Indication: HERPES ZOSTER
     Dosage: 800 MG, Z, FIVE TIMES A DAY
     Route: 048
     Dates: start: 20160716, end: 20160723

REACTIONS (8)
  - Confusional state [Unknown]
  - Mental disorder [Unknown]
  - Disorientation [Unknown]
  - Pyrexia [Unknown]
  - Psychiatric decompensation [Unknown]
  - Delirium [Unknown]
  - Hyponatraemia [Unknown]
  - Agitation [Unknown]

NARRATIVE: CASE EVENT DATE: 20160723
